FAERS Safety Report 6132567-X (Version None)
Quarter: 2009Q1

REPORT INFORMATION
  Report Type: 
  Country: None (occurrence: None)
  Receive Date: 20090324
  Receipt Date: 20090309
  Transmission Date: 20090719
  Serious: Yes (Life-Threatening, Hospitalization)
  Sender: FDA-Public Use
  Company Number: 2009S1004359

PATIENT
  Age: 77 Year
  Sex: Female

DRUGS (8)
  1. GLYBURIDE [Suspect]
     Indication: TYPE 2 DIABETES MELLITUS
     Dosage: 1.75 MG;DAILY;ORAL
     Route: 048
     Dates: start: 20000101, end: 20080727
  2. LISINOPRIL [Suspect]
     Indication: HYPERTENSION
     Dosage: 10 MG;DAILY;ORAL
     Route: 048
     Dates: start: 20030101, end: 20080727
  3. METFORMIN HCL [Suspect]
     Indication: TYPE 2 DIABETES MELLITUS
     Dosage: 500 MG;TWICE A DAY;ORAL
     Route: 048
     Dates: start: 19950101
  4. METOPROLOL TARTRATE [Suspect]
     Indication: HYPERTENSION
     Dosage: 100 MG;TWICE A DAY;ORAL
     Route: 048
     Dates: start: 19990101
  5. FURORESE (FUROSEMIDE) [Suspect]
     Indication: RENAL IMPAIRMENT
     Dosage: 60 MG;DAILY;ORAL
     Route: 048
     Dates: start: 20020101, end: 20080808
  6. ASPIRIN [Concomitant]
  7. PANTOZOL [Concomitant]
  8. XIPAMIDE [Concomitant]

REACTIONS (3)
  - DRUG INTERACTION [None]
  - HYPOGLYCAEMIA [None]
  - RENAL FAILURE ACUTE [None]
